FAERS Safety Report 6841704-0 (Version None)
Quarter: 2010Q3

REPORT INFORMATION
  Report Type: 
  Country: None (occurrence: None)
  Receive Date: 20100714
  Receipt Date: 20070709
  Transmission Date: 20110219
  Serious: No
  Sender: FDA-Public Use
  Company Number: US-PFIZER INC-2007058842

PATIENT
  Sex: Female
  Weight: 63.636 kg

DRUGS (6)
  1. CHANTIX [Suspect]
     Indication: SMOKING CESSATION THERAPY
     Dates: start: 20070101
  2. AZMACORT [Concomitant]
  3. PROZAC [Concomitant]
  4. PREDNISONE TAB [Concomitant]
  5. ACYCLOVIR [Concomitant]
  6. METRONIDAZOLE [Concomitant]

REACTIONS (3)
  - ASTHMA [None]
  - NAUSEA [None]
  - VOMITING [None]
